FAERS Safety Report 8673418 (Version 2)
Quarter: 2013Q1

REPORT INFORMATION
  Report Type: Spontaneous
  Country: BR (occurrence: BR)
  Receive Date: 20120719
  Receipt Date: 20130227
  Transmission Date: 20140127
  Serious: No
  Sender: FDA-Public Use
  Company Number: PHHY2012BR053323

PATIENT
  Sex: Male

DRUGS (2)
  1. DIOVAN AMLO FIX [Suspect]
     Indication: HYPERTENSION
     Dosage: 1 DF (VALS 320 MG AND AMLO 5 MG), DAILY
     Route: 048
  2. DIOVAN AMLO FIX [Suspect]
     Dosage: 1 DF (VALS 160 MG, AMLO 5 MG), DAILY
     Route: 048

REACTIONS (2)
  - Sciatica [Recovering/Resolving]
  - Blood pressure increased [Recovering/Resolving]
